FAERS Safety Report 4518498-7 (Version None)
Quarter: 2004Q4

REPORT INFORMATION
  Report Type: 
  Country: None (occurrence: None)
  Receive Date: 20041201
  Receipt Date: 20041118
  Transmission Date: 20050328
  Serious: Yes (Hospitalization, Other)
  Sender: FDA-Public Use
  Company Number: 2004097531

PATIENT
  Sex: Male

DRUGS (1)
  1. ARTHROTEC [Suspect]
     Indication: ARTHRITIS
     Dosage: ORAL
     Route: 048
     Dates: end: 20030101

REACTIONS (1)
  - HAEMOPTYSIS [None]
